FAERS Safety Report 10681859 (Version 1)
Quarter: 2014Q4

REPORT INFORMATION
  Report Type: Spontaneous
  Country: US (occurrence: None)
  Receive Date: 20141229
  Receipt Date: 20141229
  Transmission Date: 20150529
  Serious: Yes (Disabling)
  Sender: FDA-Public Use
  Company Number: None

PATIENT
  Age: 67 Year
  Sex: Female
  Weight: 88.45 kg

DRUGS (1)
  1. LYRICA [Suspect]
     Active Substance: PREGABALIN
     Indication: DIABETIC NEUROPATHY
     Dosage: ABOUT TWO MONTHS, 300 MG, TWICE DAILY, TAKEN BY MOUTH
     Route: 048

REACTIONS (11)
  - Suicidal ideation [None]
  - Carpal tunnel syndrome [None]
  - Paraesthesia [None]
  - Diabetic neuropathy [None]
  - Musculoskeletal stiffness [None]
  - Screaming [None]
  - Plantar fasciitis [None]
  - Peripheral swelling [None]
  - Pain in extremity [None]
  - Weight increased [None]
  - Decreased appetite [None]

NARRATIVE: CASE EVENT DATE: 20141126
